FAERS Safety Report 7426813-X (Version None)
Quarter: 2011Q2

REPORT INFORMATION
  Report Type: 
  Country: None (occurrence: None)
  Receive Date: 20110420
  Receipt Date: 20110415
  Transmission Date: 20111010
  Serious: Yes (Hospitalization, Other)
  Sender: FDA-Public Use
  Company Number: US-MERCK-1103USA03278

PATIENT
  Age: 74 Year
  Sex: Female

DRUGS (9)
  1. ALBUTEROL [Concomitant]
     Route: 065
  2. VITAMIN D (UNSPECIFIED) [Concomitant]
     Route: 065
  3. ROCALTROL [Concomitant]
     Route: 065
  4. LOVAZA [Concomitant]
     Route: 065
  5. COUMADIN [Concomitant]
     Route: 065
  6. AMIODARONE [Concomitant]
     Route: 065
  7. ASPIRIN [Concomitant]
     Route: 065
  8. LIPITOR [Concomitant]
     Route: 065
  9. JANUVIA [Suspect]
     Indication: DIABETES MELLITUS
     Route: 048
     Dates: start: 20100716, end: 20100719

REACTIONS (2)
  - RENAL FAILURE ACUTE [None]
  - RASH [None]
